FAERS Safety Report 7474066-9 (Version None)
Quarter: 2011Q2

REPORT INFORMATION
  Report Type: 
  Country: None (occurrence: None)
  Receive Date: 20110511
  Receipt Date: 20110505
  Transmission Date: 20111010
  Serious: Yes (Hospitalization)
  Sender: FDA-Public Use
  Company Number: PHHO2011IT05238

PATIENT
  Sex: Male
  Weight: 92 kg

DRUGS (9)
  1. NORVASC [Concomitant]
  2. BENAZEPRIL HYDROCHLORIDE [Suspect]
     Indication: HYPERTENSION
     Dosage: 20 MG
     Route: 048
     Dates: start: 20100322, end: 20110302
  3. ALLOPURINOL [Concomitant]
  4. ROSUVASTATIN [Concomitant]
  5. CARVEDIL [Concomitant]
  6. INSULIN [Concomitant]
  7. CARDURA [Concomitant]
  8. NOVOMIX [Concomitant]
  9. ASPIRIN [Concomitant]

REACTIONS (8)
  - RENAL FAILURE ACUTE [None]
  - ANURIA [None]
  - PNEUMONIA [None]
  - DILATATION VENTRICULAR [None]
  - PLEURAL EFFUSION [None]
  - VENTRICULAR HYPOKINESIA [None]
  - LUNG CONSOLIDATION [None]
  - MITRAL VALVE INCOMPETENCE [None]
